FAERS Safety Report 19244161 (Version 1)
Quarter: 2021Q2

REPORT INFORMATION
  Report Type: Spontaneous
  Country: US (occurrence: US)
  Receive Date: 20210512
  Receipt Date: 20210512
  Transmission Date: 20210717
  Serious: No
  Sender: FDA-Public Use
  Company Number: US-AMGEN-USASP2021070743

PATIENT
  Age: 63 Year
  Sex: Female

DRUGS (1)
  1. PROLIA [Suspect]
     Active Substance: DENOSUMAB
     Indication: BONE LOSS
     Dosage: 60 MILLIGRAM, QMO
     Route: 065
     Dates: start: 20210430

REACTIONS (4)
  - Nausea [Unknown]
  - Fatigue [Unknown]
  - Off label use [Unknown]
  - Spinal pain [Unknown]

NARRATIVE: CASE EVENT DATE: 2021
